FAERS Safety Report 10758455 (Version 1)
Quarter: 2015Q1

REPORT INFORMATION
  Report Type: Spontaneous
  Country: US (occurrence: None)
  Receive Date: 20150202
  Receipt Date: 20150202
  Transmission Date: 20150721
  Serious: No
  Sender: FDA-Public Use
  Company Number: None

PATIENT
  Age: 66 Year
  Sex: Female
  Weight: 68.04 kg

DRUGS (3)
  1. DUEXIS [Suspect]
     Active Substance: FAMOTIDINE\IBUPROFEN
     Indication: PAIN
     Dosage: 1 TABLET  THREE TIMES DAILY TAKEN BY MOUTH
     Route: 048
     Dates: start: 20141129, end: 20141215
  2. DUEXIS [Suspect]
     Active Substance: FAMOTIDINE\IBUPROFEN
     Indication: INFLAMMATION
     Dosage: 1 TABLET  THREE TIMES DAILY TAKEN BY MOUTH
     Route: 048
     Dates: start: 20141129, end: 20141215
  3. DUEXIS [Suspect]
     Active Substance: FAMOTIDINE\IBUPROFEN
     Dosage: 1 TABLET  THREE TIMES DAILY TAKEN BY MOUTH
     Route: 048
     Dates: start: 20141129, end: 20141215

REACTIONS (1)
  - Gastrointestinal tract irritation [None]

NARRATIVE: CASE EVENT DATE: 20141215
